FAERS Safety Report 17017433 (Version 1)
Quarter: 2019Q4

REPORT INFORMATION
  Report Type: Spontaneous
  Country: DE (occurrence: DE)
  Receive Date: 20191111
  Receipt Date: 20191111
  Transmission Date: 20200122
  Serious: Yes (Death, Other)
  Sender: FDA-Public Use
  Company Number: DE-ELI_LILLY_AND_COMPANY-DE201910006377

PATIENT
  Age: 63 Year

DRUGS (10)
  1. PEMETREXED. [Suspect]
     Active Substance: PEMETREXED
     Indication: BONE CANCER
     Dosage: UNK UNK, CYCLICAL
     Route: 065
     Dates: start: 20190218, end: 20190329
  2. PEMETREXED. [Suspect]
     Active Substance: PEMETREXED
     Indication: LUNG CARCINOMA CELL TYPE UNSPECIFIED STAGE IV
  3. DOCETAXEL. [Suspect]
     Active Substance: DOCETAXEL
     Indication: BONE CANCER
     Dosage: UNK UNK, CYCLICAL
     Route: 065
     Dates: start: 20190218, end: 20190311
  4. PEMBROLIZUMAB. [Suspect]
     Active Substance: PEMBROLIZUMAB
     Indication: LUNG CARCINOMA CELL TYPE UNSPECIFIED STAGE IV
     Dosage: UNK UNK, CYCLICAL
     Route: 065
     Dates: start: 20190218, end: 20190329
  5. NINTEDANIB [Suspect]
     Active Substance: NINTEDANIB
     Indication: BONE CANCER
  6. CISPLATIN. [Suspect]
     Active Substance: CISPLATIN
     Indication: LUNG CARCINOMA CELL TYPE UNSPECIFIED STAGE IV
  7. PEMBROLIZUMAB. [Suspect]
     Active Substance: PEMBROLIZUMAB
     Indication: BONE CANCER
  8. NINTEDANIB [Suspect]
     Active Substance: NINTEDANIB
     Indication: LUNG CARCINOMA CELL TYPE UNSPECIFIED STAGE IV
     Dosage: UNK UNK, CYCLICAL
     Route: 065
     Dates: start: 20190218, end: 20190311
  9. DOCETAXEL. [Suspect]
     Active Substance: DOCETAXEL
     Indication: LUNG CARCINOMA CELL TYPE UNSPECIFIED STAGE IV
  10. CISPLATIN. [Suspect]
     Active Substance: CISPLATIN
     Indication: BONE CANCER
     Dosage: UNK UNK, CYCLICAL
     Route: 065
     Dates: start: 20190218, end: 20190329

REACTIONS (4)
  - Off label use [Unknown]
  - Decreased appetite [Fatal]
  - Death [Fatal]
  - Malignant neoplasm progression [Fatal]

NARRATIVE: CASE EVENT DATE: 2019
